FAERS Safety Report 23225653 (Version 1)
Quarter: 2023Q4

REPORT INFORMATION
  Report Type: Spontaneous
  Country: IL (occurrence: IL)
  Receive Date: 20231124
  Receipt Date: 20231124
  Transmission Date: 20240109
  Serious: Yes (Disabling)
  Sender: FDA-Public Use
  Company Number: IL-TEVA-2023-IL-2949139

PATIENT
  Age: 39 Year
  Sex: Female

DRUGS (1)
  1. LETROZOLE [Suspect]
     Active Substance: LETROZOLE
     Indication: Product used for unknown indication
     Dosage: DOSAGE: 2.5
     Route: 065
     Dates: start: 20220113

REACTIONS (6)
  - Myalgia [Unknown]
  - Arthralgia [Unknown]
  - Fatigue [Unknown]
  - Nervousness [Unknown]
  - Sleep disorder [Unknown]
  - Restlessness [Unknown]
